FAERS Safety Report 22199215 (Version 1)
Quarter: 2023Q2

REPORT INFORMATION
  Report Type: Report from Study
  Country: US (occurrence: US)
  Receive Date: 20230411
  Receipt Date: 20230411
  Transmission Date: 20230721
  Serious: Yes (Other)
  Sender: FDA-Public Use
  Company Number: US-ABBVIE-4723930

PATIENT
  Sex: Female

DRUGS (1)
  1. HUMIRA [Suspect]
     Active Substance: ADALIMUMAB
     Indication: Uveitis
     Dosage: FORM STREGTH 40 MILLIGRAM
     Route: 058
     Dates: start: 20210408

REACTIONS (3)
  - Blindness [Recovering/Resolving]
  - Eye disorder [Unknown]
  - Visual impairment [Recovering/Resolving]
